FAERS Safety Report 9204777 (Version 2)
Quarter: 2013Q2

REPORT INFORMATION
  Report Type: Spontaneous
  Country: US (occurrence: US)
  Receive Date: 20130402
  Receipt Date: 20130618
  Transmission Date: 20140414
  Serious: Yes (Death)
  Sender: FDA-Public Use
  Company Number: US-GLAXOSMITHKLINE-A1018294A

PATIENT
  Age: 7 Year
  Sex: Male

DRUGS (1)
  1. FLOLAN [Suspect]
     Indication: PRODUCT USED FOR UNKNOWN INDICATION
     Dosage: 112NGKM CONTINUOUS
     Route: 042
     Dates: start: 20120514

REACTIONS (6)
  - Cardiac failure [Fatal]
  - Malnutrition [Unknown]
  - Respiratory arrest [Unknown]
  - Extracorporeal membrane oxygenation [Unknown]
  - Ventricular assist device insertion [Unknown]
  - Drug ineffective [Unknown]
